FAERS Safety Report 11952677 (Version 1)
Quarter: 2016Q1

REPORT INFORMATION
  Report Type: Spontaneous
  Country: US (occurrence: US)
  Receive Date: 20160126
  Receipt Date: 20160126
  Transmission Date: 20160526
  Serious: No
  Sender: FDA-Public Use
  Company Number: US-BAUSCH-BL-2015-011898

PATIENT
  Sex: Female

DRUGS (2)
  1. ALAWAY [Suspect]
     Active Substance: KETOTIFEN FUMARATE
     Indication: EYE PRURITUS
  2. ALAWAY [Suspect]
     Active Substance: KETOTIFEN FUMARATE
     Indication: FOREIGN BODY SENSATION IN EYES
     Dates: start: 20150420

REACTIONS (1)
  - Drug ineffective [Unknown]
